FAERS Safety Report 14238166 (Version 1)
Quarter: 2017Q4

REPORT INFORMATION
  Report Type: Spontaneous
  Country: FR (occurrence: FR)
  Receive Date: 20171130
  Receipt Date: 20171130
  Transmission Date: 20180321
  Serious: Yes (Other)
  Sender: FDA-Public Use
  Company Number: FR-MERCK KGAA-2036358

PATIENT
  Sex: Female

DRUGS (1)
  1. NOVOTHYROX [Suspect]
     Active Substance: LEVOTHYROXINE SODIUM
     Indication: POST PROCEDURAL HYPOTHYROIDISM

REACTIONS (13)
  - Headache [None]
  - Dizziness [None]
  - Hyperthyroidism [None]
  - Alopecia [Not Recovered/Not Resolved]
  - Emotional disorder [None]
  - Palpitations [None]
  - Malaise [None]
  - Chest pain [None]
  - Arthralgia [None]
  - Chills [None]
  - Tremor [None]
  - Fatigue [None]
  - Pyrexia [Recovered/Resolved]

NARRATIVE: CASE EVENT DATE: 201707
